FAERS Safety Report 7498902-5 (Version None)
Quarter: 2011Q2

REPORT INFORMATION
  Report Type: 
  Country: None (occurrence: None)
  Receive Date: 20110516
  Receipt Date: 20110503
  Transmission Date: 20111010
  Serious: Yes (Hospitalization)
  Sender: FDA-Public Use
  Company Number: 2011MA004893

PATIENT
  Age: 70 Year
  Sex: Male

DRUGS (1)
  1. RIFAMPIN [Suspect]
     Indication: TUBERCULOSIS
     Dosage: 600 MG, 1X

REACTIONS (4)
  - HEPATITIS [None]
  - CONFUSIONAL STATE [None]
  - MENTAL STATUS CHANGES [None]
  - IMMUNE RECONSTITUTION SYNDROME [None]
